FAERS Safety Report 12336834 (Version 2)
Quarter: 2016Q2

REPORT INFORMATION
  Report Type: Report from Study
  Country: US (occurrence: US)
  Receive Date: 20160505
  Receipt Date: 20160511
  Transmission Date: 20160815
  Serious: Yes (Hospitalization)
  Sender: FDA-Public Use
  Company Number: US-SA-2016SA087931

PATIENT
  Age: 82 Year
  Sex: Female

DRUGS (7)
  1. VITAMIN D3 [Concomitant]
     Active Substance: CHOLECALCIFEROL
  2. PRALUENT [Suspect]
     Active Substance: ALIROCUMAB
     Indication: TYPE V HYPERLIPIDAEMIA
     Route: 058
     Dates: start: 20160302, end: 201604
  3. ALIROCUMAB PREFILLED PEN [Concomitant]
     Active Substance: ALIROCUMAB
     Indication: TYPE V HYPERLIPIDAEMIA
     Dates: start: 20160302, end: 201604
  4. BABY ASPIRIN [Concomitant]
     Active Substance: ASPIRIN
  5. METFORMIN [Concomitant]
     Active Substance: METFORMIN HYDROCHLORIDE
     Dosage: DOSE; 1000 (UNITS NOT REPORTED).
  6. CLOPIDOGREL [Concomitant]
     Active Substance: CLOPIDOGREL BISULFATE
  7. GLIMEPIRIDE. [Concomitant]
     Active Substance: GLIMEPIRIDE

REACTIONS (5)
  - Asthenia [Unknown]
  - Fine motor skill dysfunction [Unknown]
  - Delirium [Unknown]
  - Gross motor delay [Unknown]
  - Confusional state [Unknown]

NARRATIVE: CASE EVENT DATE: 201604
